FAERS Safety Report 10999079 (Version 1)
Quarter: 2015Q2

REPORT INFORMATION
  Report Type: Spontaneous
  Country: US (occurrence: US)
  Receive Date: 20150408
  Receipt Date: 20150408
  Transmission Date: 20150821
  Serious: Yes (Other)
  Sender: FDA-Public Use
  Company Number: US-TARO PHARMACEUTICALS U.S.A., INC-2015SUN00935

PATIENT

DRUGS (5)
  1. AMIODARONE [Suspect]
     Active Substance: AMIODARONE
     Indication: PRODUCT USED FOR UNKNOWN INDICATION
     Dosage: UNK
     Route: 065
  2. DACLATASVIR [Interacting]
     Active Substance: DACLATASVIR
     Indication: CHRONIC HEPATITIS C
     Dosage: UNK
     Route: 065
  3. HARVONI [Interacting]
     Active Substance: LEDIPASVIR\SOFOSBUVIR
     Indication: CHRONIC HEPATITIS C
     Dosage: UNK
     Route: 065
  4. OLYSIO [Interacting]
     Active Substance: SIMEPREVIR
     Indication: CHRONIC HEPATITIS C
     Dosage: UNK
     Route: 065
  5. SOVALDI [Interacting]
     Active Substance: SOFOSBUVIR
     Indication: CHRONIC HEPATITIS C
     Dosage: UNK
     Route: 065

REACTIONS (2)
  - Drug interaction [Unknown]
  - Bradycardia [Unknown]
